FAERS Safety Report 17458272 (Version 1)
Quarter: 2020Q1

REPORT INFORMATION
  Report Type: Spontaneous
  Country: GB (occurrence: GB)
  Receive Date: 20200225
  Receipt Date: 20200225
  Transmission Date: 20200409
  Serious: Yes (Hospitalization)
  Sender: FDA-Public Use
  Company Number: GB-MYLANLABS-2020M1019834

PATIENT
  Age: 72 Year
  Sex: Male
  Weight: 74.2 kg

DRUGS (13)
  1. CLENIL MODULITE [Concomitant]
     Active Substance: BECLOMETHASONE DIPROPIONATE
     Dosage: UNK
     Route: 055
  2. CLOPIDOGREL [Concomitant]
     Active Substance: CLOPIDOGREL BISULFATE
  3. RAMIPRIL. [Concomitant]
     Active Substance: RAMIPRIL
  4. DEXAMETHASONE. [Concomitant]
     Active Substance: DEXAMETHASONE
  5. PROPOFOL. [Concomitant]
     Active Substance: PROPOFOL
  6. AMLODIPINE [Concomitant]
     Active Substance: AMLODIPINE BESYLATE
  7. MORPHINE [Concomitant]
     Active Substance: MORPHINE
  8. EPHEDRINE. [Concomitant]
     Active Substance: EPHEDRINE
  9. ATORVASTATIN [Concomitant]
     Active Substance: ATORVASTATIN
  10. ONDANSETRON [Suspect]
     Active Substance: ONDANSETRON
     Indication: PROPHYLAXIS OF NAUSEA AND VOMITING
     Dosage: 2MG/ML
     Route: 042
     Dates: start: 20191210
  11. FENTANYL. [Concomitant]
     Active Substance: FENTANYL
  12. ATRACURIUM [Concomitant]
     Active Substance: ATRACURIUM
  13. SALBUTAMOL [Concomitant]
     Active Substance: ALBUTEROL
     Route: 055

REACTIONS (5)
  - Asthenia [Recovered/Resolved]
  - Unresponsive to stimuli [Recovered/Resolved]
  - Hyporeflexia [Recovered/Resolved]
  - Disturbance in attention [Recovered/Resolved]
  - Locked-in syndrome [Recovered/Resolved]

NARRATIVE: CASE EVENT DATE: 20191210
